FAERS Safety Report 9662148 (Version 2)
Quarter: 2013Q4

REPORT INFORMATION
  Report Type: Spontaneous
  Country: US (occurrence: US)
  Receive Date: 20131031
  Receipt Date: 20131031
  Transmission Date: 20140711
  Serious: Yes (Other)
  Sender: FDA-Public Use
  Company Number: US-NAPPMUNDI-USA-2010-0046369

PATIENT
  Age: 48 Year
  Sex: Male

DRUGS (2)
  1. OXYCONTIN (NDA 22-272) [Suspect]
     Indication: PROCEDURAL PAIN
     Dosage: 80 MG, TID
     Dates: start: 20100825
  2. OXYCONTIN (NDA 22-272) [Suspect]
     Indication: EPILEPSY

REACTIONS (5)
  - Convulsion [Not Recovered/Not Resolved]
  - Decreased appetite [Recovered/Resolved]
  - Abdominal discomfort [Recovered/Resolved]
  - Constipation [Unknown]
  - Drug effect decreased [Not Recovered/Not Resolved]
